FAERS Safety Report 5955854-4 (Version None)
Quarter: 2008Q4

REPORT INFORMATION
  Report Type: 
  Country: None (occurrence: None)
  Receive Date: 20081117
  Receipt Date: 20081105
  Transmission Date: 20090506
  Serious: Yes (Hospitalization)
  Sender: FDA-Public Use
  Company Number: JP-PFIZER INC-2008095498

PATIENT
  Age: 76 Year
  Sex: Male

DRUGS (6)
  1. IRINOTECAN HCL [Suspect]
     Indication: LARGE INTESTINE CARCINOMA
     Dosage: DAILY DOSE:130MG
     Route: 042
     Dates: start: 20081001, end: 20081001
  2. IRINOTECAN HCL [Suspect]
     Dosage: DAILY DOSE:100MG
     Route: 042
     Dates: start: 20081029, end: 20081029
  3. FLUOROURACIL [Concomitant]
  4. LEUCOVORIN CALCIUM [Concomitant]
  5. LOPEMIN [Concomitant]
  6. LAC B [Concomitant]

REACTIONS (1)
  - HYPERAMMONAEMIA [None]
